FAERS Safety Report 25765128 (Version 2)
Quarter: 2025Q4

REPORT INFORMATION
  Report Type: Spontaneous
  Country: JP (occurrence: JP)
  Receive Date: 20250905
  Receipt Date: 20251116
  Transmission Date: 20260118
  Serious: Yes (Hospitalization)
  Sender: JOHNSON AND JOHNSON
  Company Number: JP-JNJFOC-20250906212

PATIENT
  Age: 79 Year
  Sex: Female

DRUGS (3)
  1. LAZCLUZE [Suspect]
     Active Substance: LAZERTINIB
     Indication: EGFR gene mutation
     Dosage: DOSE UNKNOWN
     Route: 048
  2. LAZCLUZE [Suspect]
     Active Substance: LAZERTINIB
     Dosage: DOSE UNKNOWN
     Route: 048
  3. RYBREVANT [Suspect]
     Active Substance: AMIVANTAMAB-VMJW
     Indication: EGFR gene mutation
     Dosage: DOSE UNKNOWN
     Route: 041

REACTIONS (2)
  - Heat illness [Recovering/Resolving]
  - Performance status decreased [Unknown]
